FAERS Safety Report 6148366-9 (Version None)
Quarter: 2009Q2

REPORT INFORMATION
  Report Type: 
  Country: None (occurrence: None)
  Receive Date: 20090408
  Receipt Date: 20090401
  Transmission Date: 20091009
  Serious: Yes (Life-Threatening, Hospitalization, Disabling, Other)
  Sender: FDA-Public Use
  Company Number: US-JNJFOC-20081105232

PATIENT
  Sex: Female
  Weight: 50.35 kg

DRUGS (19)
  1. DURAGESIC-100 [Suspect]
     Route: 062
  2. DURAGESIC-100 [Suspect]
     Dosage: 25UG/HR PLUS 12.5UG/HR PATCH
     Route: 062
  3. DURAGESIC-100 [Suspect]
     Route: 062
  4. DURAGESIC-100 [Suspect]
     Indication: HEADACHE
     Route: 062
  5. TOPAMAX [Concomitant]
     Indication: MIGRAINE
     Route: 048
  6. FLEXERIL [Concomitant]
  7. FLEXERIL [Concomitant]
  8. OXYBUTYNIN CHLORIDE [Concomitant]
  9. LOPERAMIDE HCL [Concomitant]
  10. CLARINEX [Concomitant]
  11. CYMBALTA [Concomitant]
     Indication: DEPRESSION
  12. METFORMIN HCL [Concomitant]
  13. KLONOPIN [Concomitant]
  14. INDERAL [Concomitant]
  15. ROZEREM [Concomitant]
  16. LIDODERM [Concomitant]
     Indication: BACK PAIN
  17. EFFEXOR [Concomitant]
     Indication: DEPRESSION
  18. NEURONTIN [Concomitant]
     Indication: NEUROPATHY PERIPHERAL
  19. DEPAKOTE [Concomitant]
     Indication: BIPOLAR DISORDER

REACTIONS (23)
  - ACUTE RESPIRATORY FAILURE [None]
  - ARRHYTHMIA [None]
  - ARTHRALGIA [None]
  - BLOOD POTASSIUM INCREASED [None]
  - CHEST PAIN [None]
  - DEAFNESS [None]
  - DEPRESSION [None]
  - DRUG DOSE OMISSION [None]
  - DRUG PRESCRIBING ERROR [None]
  - GASTROOESOPHAGEAL REFLUX DISEASE [None]
  - HEADACHE [None]
  - HERPES ZOSTER [None]
  - HYPERTENSION [None]
  - INADEQUATE ANALGESIA [None]
  - INCORRECT DRUG ADMINISTRATION DURATION [None]
  - PAIN OF SKIN [None]
  - PHOTOSENSITIVITY REACTION [None]
  - PNEUMONIA [None]
  - RASH [None]
  - RENAL FAILURE [None]
  - SEDATION [None]
  - THIRST [None]
  - WITHDRAWAL SYNDROME [None]
